FAERS Safety Report 7871637-2 (Version None)
Quarter: 2011Q4

REPORT INFORMATION
  Report Type: 
  Country: None (occurrence: None)
  Receive Date: 20111029
  Receipt Date: 20110304
  Transmission Date: 20120403
  Serious: No
  Sender: FDA-Public Use
  Company Number: US-AMGEN-USASP2011012567

PATIENT
  Age: 57 Year
  Sex: Female

DRUGS (1)
  1. ENBREL [Suspect]
     Indication: RHEUMATOID ARTHRITIS
     Dates: start: 20050101

REACTIONS (7)
  - ALOPECIA [None]
  - SINUS CONGESTION [None]
  - OROPHARYNGEAL PAIN [None]
  - INJURY [None]
  - INCREASED TENDENCY TO BRUISE [None]
  - PHARYNGITIS STREPTOCOCCAL [None]
  - PSORIASIS [None]
